FAERS Safety Report 4369091-0 (Version None)
Quarter: 2004Q2

REPORT INFORMATION
  Report Type: 
  Country: None (occurrence: None)
  Receive Date: 20040527
  Receipt Date: 20040511
  Transmission Date: 20050107
  Serious: Yes (Hospitalization)
  Sender: FDA-Public Use
  Company Number: 194013

PATIENT
  Age: 30 Year
  Sex: Female

DRUGS (7)
  1. AVONEX [Suspect]
     Indication: MULTIPLE SCLEROSIS
     Dosage: 30 MCG QW IM
     Route: 030
     Dates: start: 20021107
  2. AVONEX [Suspect]
     Indication: MULTIPLE SCLEROSIS
     Dosage: 30 MCG QW IM
     Route: 030
  3. FOLIC ACID [Concomitant]
  4. MICRONOR [Concomitant]
  5. NEURONTIN [Concomitant]
  6. VITAMIN C [Concomitant]
  7. MULTI-VITAMINS [Concomitant]

REACTIONS (9)
  - ACUTE RESPIRATORY DISTRESS SYNDROME [None]
  - CHEST X-RAY ABNORMAL [None]
  - EPIGLOTTITIS [None]
  - LARYNGEAL INFILTRATION [None]
  - PROCEDURAL HYPERTENSION [None]
  - RESPIRATORY FAILURE [None]
  - STRIDOR [None]
  - SWELLING [None]
  - VOCAL CORD PARALYSIS [None]
